FAERS Safety Report 24194929 (Version 1)
Quarter: 2024Q3

REPORT INFORMATION
  Report Type: Spontaneous
  Country: CA (occurrence: CA)
  Receive Date: 20240809
  Receipt Date: 20240809
  Transmission Date: 20241017
  Serious: Yes (Hospitalization)
  Sender: RECORDATI
  Company Number: CA-RECORDATI RARE DISEASE INC.-2024006104

PATIENT

DRUGS (3)
  1. CARBAGLU [Suspect]
     Active Substance: CARGLUMIC ACID
     Indication: Carbamoyl phosphate synthetase deficiency
     Dosage: SINCE BIRTH
     Route: 065
  2. CARBAGLU [Suspect]
     Active Substance: CARGLUMIC ACID
     Indication: N-acetylglutamate synthase deficiency
  3. CARBAGLU [Suspect]
     Active Substance: CARGLUMIC ACID
     Indication: Off label use

REACTIONS (2)
  - Hospitalisation [Unknown]
  - Drug effective for unapproved indication [Recovered/Resolved]

NARRATIVE: CASE EVENT DATE: 20240601
